FAERS Safety Report 11771229 (Version 2)
Quarter: 2016Q1

REPORT INFORMATION
  Report Type: Spontaneous
  Country: US (occurrence: US)
  Receive Date: 20151124
  Receipt Date: 20160113
  Transmission Date: 20160525
  Serious: Yes (Other)
  Sender: FDA-Public Use
  Company Number: US-PFIZER INC-2015233736

PATIENT
  Age: 65 Year
  Sex: Female

DRUGS (1)
  1. REVATIO [Suspect]
     Active Substance: SILDENAFIL CITRATE
     Indication: PULMONARY ARTERIAL HYPERTENSION
     Dosage: 20MG ONE (1) TABLET, THREE TIMES A DAY
     Route: 048
     Dates: start: 20131016

REACTIONS (5)
  - Therapeutic response unexpected [Unknown]
  - Cognitive disorder [Unknown]
  - Confusional state [Unknown]
  - Pre-existing condition improved [Unknown]
  - Hallucination, auditory [Unknown]
